FAERS Safety Report 25847204 (Version 1)
Quarter: 2025Q3

REPORT INFORMATION
  Report Type: Spontaneous
  Country: US (occurrence: US)
  Receive Date: 20250925
  Receipt Date: 20250925
  Transmission Date: 20251020
  Serious: Yes (Other)
  Sender: TAIHO ONCOLOGY INC
  Company Number: US-TAIHOP-2025-010205

PATIENT
  Age: 76 Year
  Sex: Male

DRUGS (2)
  1. INQOVI [Suspect]
     Active Substance: CEDAZURIDINE\DECITABINE
     Indication: Myelodysplastic syndrome
     Dosage: 135 MG (DECITABINE 35MG AND CEDAZURIDINE 100 MG) ON DAYS 1 THROUGH 5 OF EACH 28 DAY CYCLE?CYCLE UNKN
     Route: 048
  2. TETANUS TOXOID ADSORBED (VACCINE) [Suspect]
     Active Substance: TETANUS TOXOIDS
     Indication: Product used for unknown indication

REACTIONS (6)
  - Transfusion [Unknown]
  - Urticaria [Unknown]
  - Pain [Unknown]
  - Arthralgia [Unknown]
  - Swelling face [Unknown]
  - Pain in extremity [Unknown]

NARRATIVE: CASE EVENT DATE: 20250829
